FAERS Safety Report 8323306-2 (Version None)
Quarter: 2012Q2

REPORT INFORMATION
  Report Type: 
  Country: None (occurrence: None)
  Receive Date: 20120430
  Receipt Date: 20120424
  Transmission Date: 20120825
  Serious: No
  Sender: FDA-Public Use
  Company Number: US-PFIZER INC-2012101709

PATIENT
  Sex: Female
  Weight: 58.957 kg

DRUGS (6)
  1. VITAMIN C [Concomitant]
     Dosage: UNK
  2. CELEBREX [Suspect]
     Indication: BACK PAIN
     Dosage: 200 MG, 1X/DAY
     Route: 048
     Dates: start: 20120421
  3. CELEBREX [Suspect]
     Indication: ARTHRALGIA
  4. CALCIUM [Concomitant]
     Dosage: UNK
  5. ANASTROZOLE [Concomitant]
     Indication: BREAST CANCER
     Dosage: UNK
  6. VITAMIN D [Concomitant]
     Dosage: UNK

REACTIONS (1)
  - DIARRHOEA [None]
